FAERS Safety Report 9705526 (Version 1)
Quarter: 2013Q4

REPORT INFORMATION
  Report Type: Spontaneous
  Country: US (occurrence: US)
  Receive Date: 20131122
  Receipt Date: 20131122
  Transmission Date: 20140711
  Serious: Yes (Hospitalization, Other)
  Sender: FDA-Public Use
  Company Number: US-FRI-1000051525

PATIENT
  Age: 62 Year
  Sex: Female

DRUGS (9)
  1. DALIRESP [Suspect]
     Indication: CHRONIC OBSTRUCTIVE PULMONARY DISEASE
     Dates: start: 2011, end: 201112
  2. SINGULAIR [Concomitant]
  3. DILTIAZEM [Concomitant]
  4. POTASSIUM [Concomitant]
  5. ALENDRONATE SODIUM [Concomitant]
  6. BUMETANIDE [Concomitant]
  7. OMEPRAZOLE [Concomitant]
  8. PREDNISONE [Concomitant]
  9. ALBUTEROL SULFATE [Concomitant]

REACTIONS (3)
  - Pneumonia [Recovered/Resolved]
  - Tachycardia [Recovered/Resolved]
  - Chronic obstructive pulmonary disease [Recovered/Resolved]
